FAERS Safety Report 24304477 (Version 1)
Quarter: 2024Q3

REPORT INFORMATION
  Report Type: Spontaneous
  Country: US (occurrence: None)
  Receive Date: 20240910
  Receipt Date: 20240910
  Transmission Date: 20241016
  Serious: Yes (Hospitalization)
  Sender: Public
  Company Number: None

PATIENT
  Age: 49 Year
  Sex: Male
  Weight: 95.3 kg

DRUGS (1)
  1. YESCARTA [Suspect]
     Active Substance: AXICABTAGENE CILOLEUCEL
     Indication: Follicular lymphoma
     Dosage: 1 DF DOSAFE FORM ONCE INTRAVENOUS
     Route: 042
     Dates: start: 20240715, end: 20240715

REACTIONS (5)
  - Cytokine release syndrome [None]
  - Vitreous floaters [None]
  - Papilloedema [None]
  - Headache [None]
  - Hypophagia [None]

NARRATIVE: CASE EVENT DATE: 20240719
